FAERS Safety Report 17051292 (Version 1)
Quarter: 2019Q4

REPORT INFORMATION
  Report Type: Spontaneous
  Country: JP (occurrence: JP)
  Receive Date: 20191120
  Receipt Date: 20191120
  Transmission Date: 20200122
  Serious: Yes (Other)
  Sender: FDA-Public Use
  Company Number: JP-BAYER-2019-200944

PATIENT
  Age: 72 Year
  Sex: Male

DRUGS (4)
  1. COMPOUND SULFAMETHOXAZOLE [SULFAMETHOXAZOLE;TRIMETHOPRIM] [Concomitant]
     Indication: STENOTROPHOMONAS INFECTION
  2. CIPROXAN-I.V.400 [Suspect]
     Active Substance: CIPROFLOXACIN
     Indication: STENOTROPHOMONAS INFECTION
  3. COMPOUND SULFAMETHOXAZOLE [SULFAMETHOXAZOLE;TRIMETHOPRIM] [Concomitant]
     Indication: PERITONITIS
     Dosage: UNK
     Route: 033
     Dates: start: 201807
  4. CIPROXAN-I.V.400 [Suspect]
     Active Substance: CIPROFLOXACIN
     Indication: PERITONITIS
     Dosage: UNK
     Route: 033
     Dates: start: 201807

REACTIONS (4)
  - Product use in unapproved indication [None]
  - Peritonitis bacterial [None]
  - Off label use [None]
  - Drug resistance [None]
